FAERS Safety Report 6611556-2 (Version None)
Quarter: 2010Q1

REPORT INFORMATION
  Report Type: 
  Country: None (occurrence: None)
  Receive Date: 20100303
  Receipt Date: 20100225
  Transmission Date: 20100710
  Serious: Yes (Other)
  Sender: FDA-Public Use
  Company Number: PHEH2008US10984

PATIENT
  Sex: Female

DRUGS (5)
  1. ELIDEL [Suspect]
     Indication: ECZEMA
     Route: 061
  2. PROTOPIC [Suspect]
     Indication: ECZEMA
  3. AUGMENTIN                               /SCH/ [Concomitant]
  4. AZITHROMYC [Suspect]
  5. ATUSS DM [Concomitant]

REACTIONS (2)
  - GENERAL PHYSICAL HEALTH DETERIORATION [None]
  - NON-HODGKIN'S LYMPHOMA [None]
